FAERS Safety Report 18483891 (Version 3)
Quarter: 2021Q1

REPORT INFORMATION
  Report Type: Report from Study
  Country: None (occurrence: FR)
  Receive Date: 20201110
  Receipt Date: 20210128
  Transmission Date: 20210419
  Serious: Yes (Hospitalization, Disabling)
  Sender: FDA-Public Use
  Company Number: FR-ABBVIE-20K-056-3644766-00

PATIENT
  Age: 86 Year
  Sex: Male
  Weight: 100 kg

DRUGS (1)
  1. IBRUTINIB [Suspect]
     Active Substance: IBRUTINIB
     Indication: CHRONIC LYMPHOCYTIC LEUKAEMIA
     Route: 048
     Dates: start: 20161010

REACTIONS (1)
  - Wrist fracture [Recovered/Resolved with Sequelae]

NARRATIVE: CASE EVENT DATE: 20200425
